FAERS Safety Report 7803548-2 (Version None)
Quarter: 2011Q4

REPORT INFORMATION
  Report Type: 
  Country: None (occurrence: None)
  Receive Date: 20111009
  Receipt Date: 20111007
  Transmission Date: 20120403
  Serious: Yes (Hospitalization)
  Sender: FDA-Public Use
  Company Number: US-BRACCO-006581

PATIENT
  Sex: Male

DRUGS (14)
  1. MULTIHANCE [Suspect]
     Indication: NUCLEAR MAGNETIC RESONANCE IMAGING BRAIN
     Route: 042
     Dates: start: 20110728, end: 20110728
  2. GLYBURIDE [Concomitant]
     Route: 048
  3. LISINOPRIL [Concomitant]
     Route: 048
  4. ASPIRIN [Concomitant]
     Route: 048
  5. ALLEGRA [Concomitant]
     Route: 048
  6. NEURONTIN [Concomitant]
  7. MULTIHANCE [Suspect]
     Indication: TRIGEMINAL NEURALGIA
     Route: 042
     Dates: start: 20110728, end: 20110728
  8. VICODIN [Concomitant]
     Indication: PAIN
     Dosage: 7.5/750 MG Q8HR PRN FOR PAIN
     Route: 048
  9. GLUCOPHAGE [Concomitant]
     Route: 048
  10. TIMOPTIC [Concomitant]
     Dosage: ONE DROP EACH EYE TWICE DAILY
     Route: 047
  11. NORVASC [Concomitant]
     Route: 048
  12. ULTRAM [Concomitant]
     Dosage: 50 MG PO AS NEEDED
     Route: 048
  13. CRESTOR [Concomitant]
     Route: 048
  14. RESTORIL [Concomitant]
     Indication: INSOMNIA
     Dosage: AS NEEDED
     Route: 048

REACTIONS (2)
  - HYPERSENSITIVITY [None]
  - CARDIAC ARREST [None]
